FAERS Safety Report 10558213 (Version 1)
Quarter: 2014Q4

REPORT INFORMATION
  Report Type: Spontaneous
  Country: GB (occurrence: GB)
  Receive Date: 20141031
  Receipt Date: 20141031
  Transmission Date: 20150529
  Serious: No
  Sender: FDA-Public Use
  Company Number: GB-009507513-1410GBR016302

PATIENT
  Age: 62 Year
  Sex: Female

DRUGS (1)
  1. ZOCOR [Suspect]
     Active Substance: SIMVASTATIN
     Indication: BLOOD CHOLESTEROL INCREASED
     Dosage: UNK
     Route: 048

REACTIONS (10)
  - Self esteem decreased [Unknown]
  - Drug interaction [Unknown]
  - Balance disorder [Unknown]
  - Activities of daily living impaired [Unknown]
  - Dizziness [Unknown]
  - Vomiting [Unknown]
  - Nausea [Unknown]
  - Abdominal pain [Unknown]
  - Psychiatric symptom [Unknown]
  - Fatigue [Unknown]
